FAERS Safety Report 5135966-8 (Version None)
Quarter: 2006Q4

REPORT INFORMATION
  Report Type: 
  Country: None (occurrence: None)
  Receive Date: 20061020
  Receipt Date: 20061009
  Transmission Date: 20070319
  Serious: Yes (Disabling, Other)
  Sender: FDA-Public Use
  Company Number: 2005171342

PATIENT
  Sex: Female

DRUGS (7)
  1. FELDENE [Suspect]
     Indication: PAIN
     Dosage: 20 MG, RECTAL
     Route: 054
     Dates: start: 19960101
  2. BELLADONNA EXTRACT (BELLADONNA EXTRACT) [Concomitant]
  3. CAMPHOR (CAMPHOR) [Concomitant]
  4. NEOSALDINA (CAFFEINE, ISOMETHEPTENE, METAMIZOLE SODIUM) [Concomitant]
  5. CATAFLAM [Concomitant]
  6. METHYL SALICYLATE (METHYL SALICYCLATE) [Concomitant]
  7. GINKGO BILOBA (GINKGO BILOBA) [Concomitant]

REACTIONS (16)
  - ABDOMINAL DISCOMFORT [None]
  - ANAL HAEMORRHAGE [None]
  - ANORECTAL DISORDER [None]
  - APPLICATION SITE ODOUR [None]
  - BEDRIDDEN [None]
  - DIARRHOEA [None]
  - FALL [None]
  - FLATULENCE [None]
  - GAIT DISTURBANCE [None]
  - HAEMORRHOIDS [None]
  - LIMB INJURY [None]
  - PAIN [None]
  - PROCTALGIA [None]
  - SPINAL FRACTURE [None]
  - TENDONITIS [None]
  - VAGINAL DISORDER [None]
